FAERS Safety Report 6736140-1 (Version None)
Quarter: 2010Q2

REPORT INFORMATION
  Report Type: 
  Country: None (occurrence: None)
  Receive Date: 20100521
  Receipt Date: 20100518
  Transmission Date: 20101027
  Serious: Yes (Death, Hospitalization)
  Sender: FDA-Public Use
  Company Number: FR-ROCHE-703827

PATIENT
  Sex: Male

DRUGS (6)
  1. RIVOTRIL [Suspect]
     Indication: DRUG USE FOR UNKNOWN INDICATION
     Dosage: STRENGTH:2.5MG/ML; TAKEN IN EVENING
     Route: 048
  2. TYSABRI [Suspect]
     Indication: MULTIPLE SCLEROSIS
     Dosage: FORM:SOLUTION FOR INFUSION
     Route: 042
     Dates: start: 20070531, end: 20100402
  3. LYRICA [Suspect]
     Route: 048
     Dates: start: 20090301
  4. ZALDIAR [Suspect]
     Indication: PAIN
     Route: 048
  5. DITROPAN [Suspect]
     Indication: MICTURITION DISORDER
     Route: 048
  6. JOSIR LP [Suspect]
     Indication: MICTURITION DISORDER
     Route: 048

REACTIONS (5)
  - ACCIDENTAL DEATH [None]
  - AMNESIA [None]
  - ANXIETY [None]
  - CONFUSIONAL STATE [None]
  - INSOMNIA [None]
